FAERS Safety Report 6359464-9 (Version None)
Quarter: 2009Q3

REPORT INFORMATION
  Report Type: 
  Country: None (occurrence: None)
  Receive Date: 20090917
  Receipt Date: 20090911
  Transmission Date: 20100115
  Serious: Yes (Hospitalization, Other)
  Sender: FDA-Public Use
  Company Number: US-BAYER-200932721NA

PATIENT
  Age: 49 Year
  Sex: Male

DRUGS (1)
  1. NEXAVAR [Suspect]
     Indication: HEPATIC NEOPLASM MALIGNANT
     Dosage: TOTAL DAILY DOSE: 800 MG  UNIT DOSE: 200 MG
     Route: 048
     Dates: start: 20090601, end: 20090601

REACTIONS (4)
  - ABDOMINAL PAIN [None]
  - PANCREATITIS [None]
  - PLATELET COUNT DECREASED [None]
  - SPLENOMEGALY [None]
